FAERS Safety Report 8088729-8 (Version None)
Quarter: 2012Q1

REPORT INFORMATION
  Report Type: 
  Country: None (occurrence: None)
  Receive Date: 20120128
  Receipt Date: 20110603
  Transmission Date: 20120608
  Serious: No
  Sender: FDA-Public Use
  Company Number: US-ABBOTT-11P-163-0730796-00

PATIENT
  Sex: Male

DRUGS (4)
  1. DICLOFENAC [Concomitant]
     Indication: PRODUCT USED FOR UNKNOWN INDICATION
  2. HUMIRA [Suspect]
     Indication: PSORIATIC ARTHROPATHY
     Dosage: INITIAL DOSE
     Route: 058
     Dates: start: 20110304, end: 20110304
  3. CITALOPRAM [Concomitant]
     Indication: PRODUCT USED FOR UNKNOWN INDICATION
  4. HUMIRA [Suspect]
     Dosage: LATEST INJECTION WAS ON 20 MAY 2011.
     Route: 058
     Dates: start: 20110311

REACTIONS (4)
  - THROAT IRRITATION [None]
  - NASOPHARYNGITIS [None]
  - COUGH [None]
  - RHINORRHOEA [None]
